FAERS Safety Report 4527637-3 (Version None)
Quarter: 2004Q4

REPORT INFORMATION
  Report Type: 
  Country: None (occurrence: None)
  Receive Date: 20041215
  Receipt Date: 20041206
  Transmission Date: 20050328
  Serious: Yes (Other)
  Sender: FDA-Public Use
  Company Number: US-AMGEN-US101847

PATIENT
  Sex: Male

DRUGS (1)
  1. ENBREL [Suspect]
     Indication: PSORIASIS
     Dates: start: 20040701

REACTIONS (5)
  - ANURIA [None]
  - ERYTHEMA ELEVATUM DIUTINUM [None]
  - FACIAL PALSY [None]
  - PAROTITIS [None]
  - PULMONARY HILUM MASS [None]
